FAERS Safety Report 18453516 (Version 29)
Quarter: 2024Q3

REPORT INFORMATION
  Report Type: Report from Study
  Country: US (occurrence: US)
  Receive Date: 20201102
  Receipt Date: 20240905
  Transmission Date: 20241016
  Serious: Yes (Hospitalization, Other)
  Sender: TAKEDA
  Company Number: US-SHIRE-US202006114

PATIENT
  Sex: Female

DRUGS (5)
  1. HUMAN IMMUNOGLOBULIN G [Suspect]
     Active Substance: HUMAN IMMUNOGLOBULIN G
     Indication: Primary immunodeficiency syndrome
     Dosage: 40 GRAM
     Route: 042
  2. HUMAN IMMUNOGLOBULIN G [Suspect]
     Active Substance: HUMAN IMMUNOGLOBULIN G
     Indication: Immunodeficiency common variable
     Dosage: UNK UNK, MONTHLY
     Route: 042
  3. HUMAN IMMUNOGLOBULIN G [Suspect]
     Active Substance: HUMAN IMMUNOGLOBULIN G
     Dosage: 40 GRAM, MONTHLY
     Route: 042
  4. COVID-19 VACCINE NOS [Suspect]
     Active Substance: COVID-19 VACCINE
     Indication: COVID-19 immunisation
     Dosage: UNK
     Route: 065
  5. DOXYCYCLINE [Suspect]
     Active Substance: DOXYCYCLINE\DOXYCYCLINE HYCLATE
     Indication: Product used for unknown indication
     Dosage: UNK
     Route: 065

REACTIONS (41)
  - Rotator cuff syndrome [Unknown]
  - Loss of consciousness [Unknown]
  - Fall [Unknown]
  - Pneumonia [Recovered/Resolved]
  - Influenza [Recovered/Resolved]
  - Feeding disorder [Unknown]
  - Underweight [Unknown]
  - Infusion site rash [Unknown]
  - Blood test abnormal [Unknown]
  - Localised infection [Unknown]
  - Feeling cold [Unknown]
  - Nausea [Unknown]
  - Illness [Unknown]
  - Catheter site pain [Unknown]
  - Malnutrition [Unknown]
  - Limb injury [Unknown]
  - Respiratory syncytial virus infection [Unknown]
  - Weight decreased [Unknown]
  - Procedural pain [Recovering/Resolving]
  - Ovarian cyst [Unknown]
  - Sleep disorder [Unknown]
  - Multiple allergies [Unknown]
  - Medical device site infection [Recovering/Resolving]
  - Staphylococcal infection [Unknown]
  - Infection [Unknown]
  - Blood iron decreased [Unknown]
  - Blood phosphorus decreased [Unknown]
  - Ear injury [Unknown]
  - Device related infection [Unknown]
  - Drug hypersensitivity [Unknown]
  - Sinusitis [Unknown]
  - Acne [Unknown]
  - Asthma [Unknown]
  - Dyspnoea [Unknown]
  - Cough [Unknown]
  - Vomiting [Unknown]
  - Pain in extremity [Unknown]
  - Pyrexia [Unknown]
  - Headache [Unknown]
  - Fatigue [Unknown]
  - Dizziness [Unknown]
